FAERS Safety Report 22192958 (Version 1)
Quarter: 2023Q2

REPORT INFORMATION
  Report Type: Spontaneous
  Country: SE (occurrence: SE)
  Receive Date: 20230410
  Receipt Date: 20230410
  Transmission Date: 20230722
  Serious: Yes (Other)
  Sender: FDA-Public Use
  Company Number: SE-TEVA-2023-SE-2874201

PATIENT
  Age: 90 Year
  Sex: Female

DRUGS (2)
  1. OXAZEPAM [Suspect]
     Active Substance: OXAZEPAM
     Indication: Product used for unknown indication
     Dosage: 1 TABLET EVERY 4TH HOUR
     Route: 048
     Dates: start: 2022
  2. LYRICA [Concomitant]
     Active Substance: PREGABALIN
     Indication: Product used for unknown indication
     Dates: start: 2022

REACTIONS (3)
  - Suicidal ideation [Unknown]
  - Memory impairment [Not Recovered/Not Resolved]
  - Drug ineffective [Unknown]
